FAERS Safety Report 5357930-6 (Version None)
Quarter: 2007Q2

REPORT INFORMATION
  Report Type: 
  Country: None (occurrence: None)
  Receive Date: 20070614
  Receipt Date: 20070601
  Transmission Date: 20071010
  Serious: Yes (Hospitalization)
  Sender: FDA-Public Use
  Company Number: US-ELI_LILLY_AND_COMPANY-US_981113149

PATIENT
  Age: 44 Year
  Sex: Female

DRUGS (1)
  1. ZYPREXA [Suspect]
     Indication: SCHIZOPHRENIA
     Dosage: 1 G, DAILY (1/D)
     Route: 048

REACTIONS (10)
  - AGITATION [None]
  - CONFUSIONAL STATE [None]
  - DRY SKIN [None]
  - DYSARTHRIA [None]
  - HEART RATE INCREASED [None]
  - LOSS OF CONSCIOUSNESS [None]
  - MIOSIS [None]
  - NO THERAPEUTIC RESPONSE [None]
  - OVERDOSE [None]
  - SUICIDE ATTEMPT [None]
